FAERS Safety Report 8849236 (Version 1)
Quarter: 2012Q4

REPORT INFORMATION
  Report Type: Spontaneous
  Country: US (occurrence: None)
  Receive Date: 20121018
  Receipt Date: 20121018
  Transmission Date: 20130627
  Serious: Yes (Other)
  Sender: FDA-Public Use
  Company Number: None

PATIENT
  Age: 58 Year
  Sex: Female
  Weight: 56.7 kg

DRUGS (1)
  1. ENBREL [Suspect]
     Indication: RA
     Dates: start: 20100407, end: 201209

REACTIONS (1)
  - Convulsion [None]
